FAERS Safety Report 14936541 (Version 2)
Quarter: 2018Q3

REPORT INFORMATION
  Report Type: Report from Study
  Country: US (occurrence: US)
  Receive Date: 20180525
  Receipt Date: 20180905
  Transmission Date: 20181010
  Serious: Yes (Hospitalization)
  Sender: FDA-Public Use
  Company Number: US-VIFOR (INTERNATIONAL) INC.-VIT-2018-03255

PATIENT
  Age: 78 Year
  Sex: Female

DRUGS (11)
  1. HUMALOG MIX [Concomitant]
     Active Substance: INSULIN LISPRO
  2. LASIX [Concomitant]
     Active Substance: FUROSEMIDE
  3. SODIUM BICARBONATE. [Concomitant]
     Active Substance: SODIUM BICARBONATE
  4. NIFEDIPINE. [Concomitant]
     Active Substance: NIFEDIPINE
  5. VELTASSA [Suspect]
     Active Substance: PATIROMER
     Indication: HYPERKALAEMIA
     Dates: start: 201802
  6. METOPROLOL TARTRATE. [Concomitant]
     Active Substance: METOPROLOL TARTRATE
  7. HYDRALAZINE HYDROCHLORIDE. [Concomitant]
     Active Substance: HYDRALAZINE HYDROCHLORIDE
  8. ATORVASTATIN CALCIUM. [Concomitant]
     Active Substance: ATORVASTATIN CALCIUM
  9. VELTASSA [Suspect]
     Active Substance: PATIROMER
     Route: 048
     Dates: start: 20180413, end: 2018
  10. LISINOPRIL. [Concomitant]
     Active Substance: LISINOPRIL
  11. ACETYLSALICYLIC ACID [Concomitant]
     Active Substance: ASPIRIN

REACTIONS (3)
  - Hospitalisation [Not Recovered/Not Resolved]
  - Renal failure [Unknown]
  - Myocardial infarction [Unknown]

NARRATIVE: CASE EVENT DATE: 2018
